FAERS Safety Report 9410256 (Version 2)
Quarter: 2013Q3

REPORT INFORMATION
  Report Type: Report from Study
  Country: US (occurrence: US)
  Receive Date: 20130719
  Receipt Date: 20130809
  Transmission Date: 20140515
  Serious: Yes (Hospitalization, Other)
  Sender: FDA-Public Use
  Company Number: US-BAXTER-2013BAX028401

PATIENT
  Age: 50 Year
  Sex: Female

DRUGS (1)
  1. ARALAST NP [Suspect]
     Indication: ALPHA-1 ANTI-TRYPSIN DEFICIENCY
     Route: 042

REACTIONS (8)
  - Upper respiratory tract infection [Recovered/Resolved]
  - Sinusitis [Recovered/Resolved]
  - Pneumonia [Recovered/Resolved]
  - Bronchitis [Recovered/Resolved]
  - Fluid overload [Recovered/Resolved]
  - Swelling [Recovered/Resolved]
  - Cardiac failure congestive [Recovered/Resolved]
  - Urinary tract infection [Recovered/Resolved]
